FAERS Safety Report 13050094 (Version 1)
Quarter: 2016Q4

REPORT INFORMATION
  Report Type: Spontaneous
  Country: US (occurrence: US)
  Receive Date: 20161221
  Receipt Date: 20161221
  Transmission Date: 20170207
  Serious: No
  Sender: FDA-Public Use
  Company Number: US-NOVOPROD-491488

PATIENT
  Age: 69 Year
  Sex: Female
  Weight: 90.7 kg

DRUGS (2)
  1. LEVEMIR [Suspect]
     Active Substance: INSULIN DETEMIR
     Indication: TYPE 2 DIABETES MELLITUS
     Dosage: 9 U, QD AT NIGHT
     Route: 058
     Dates: start: 20151010, end: 20151022
  2. LEVEMIR [Suspect]
     Active Substance: INSULIN DETEMIR
     Dosage: 14 U, QD AT BEDTIME
     Route: 058
     Dates: start: 20151023, end: 201512

REACTIONS (3)
  - Weight increased [Not Recovered/Not Resolved]
  - Blood glucose increased [Not Recovered/Not Resolved]
  - Pain [Not Recovered/Not Resolved]

NARRATIVE: CASE EVENT DATE: 2015
